FAERS Safety Report 10464956 (Version 1)
Quarter: 2014Q3

REPORT INFORMATION
  Report Type: Spontaneous
  Country: US (occurrence: US)
  Receive Date: 20140919
  Receipt Date: 20140919
  Transmission Date: 20150326
  Serious: Yes (Other)
  Sender: FDA-Public Use
  Company Number: US-GLAXOSMITHKLINE-A1089027A

PATIENT
  Age: 85 Year
  Sex: Female

DRUGS (3)
  1. ATENOLOL. [Concomitant]
     Active Substance: ATENOLOL
  2. FELODIPINE. [Concomitant]
     Active Substance: FELODIPINE
  3. ADVAIR HFA [Suspect]
     Active Substance: FLUTICASONE PROPIONATE\SALMETEROL XINAFOATE
     Indication: CHRONIC OBSTRUCTIVE PULMONARY DISEASE
     Dosage: 1PUFF PER DAY
     Route: 055
     Dates: start: 201406

REACTIONS (8)
  - Cough [Not Recovered/Not Resolved]
  - Nasal disorder [Not Recovered/Not Resolved]
  - Paranasal sinus hypersecretion [Not Recovered/Not Resolved]
  - Dyspnoea [Not Recovered/Not Resolved]
  - Choking [Not Recovered/Not Resolved]
  - Throat irritation [Not Recovered/Not Resolved]
  - Underdose [Not Recovered/Not Resolved]
  - Sinus disorder [Not Recovered/Not Resolved]

NARRATIVE: CASE EVENT DATE: 2014
